FAERS Safety Report 23939880 (Version 1)
Quarter: 2024Q2

REPORT INFORMATION
  Report Type: Spontaneous
  Country: US (occurrence: US)
  Receive Date: 20240605
  Receipt Date: 20240605
  Transmission Date: 20240715
  Serious: No
  Sender: FDA-Public Use
  Company Number: US-TEVA-VS-3201571

PATIENT
  Age: 59 Year
  Sex: Male

DRUGS (1)
  1. AUSTEDO [Suspect]
     Active Substance: DEUTETRABENAZINE
     Indication: Product used for unknown indication
     Route: 065

REACTIONS (3)
  - Product use issue [Not Recovered/Not Resolved]
  - Dyskinesia [Unknown]
  - Gait inability [Unknown]

NARRATIVE: CASE EVENT DATE: 20240501
